FAERS Safety Report 19007146 (Version 1)
Quarter: 2021Q1

REPORT INFORMATION
  Report Type: Spontaneous
  Country: US (occurrence: US)
  Receive Date: 20210314
  Receipt Date: 20210314
  Transmission Date: 20210420
  Serious: Yes (Hospitalization, Other)
  Sender: FDA-Public Use
  Company Number: None

PATIENT

DRUGS (1)
  1. LISINOPRIL   TAB 20MG [Suspect]
     Active Substance: LISINOPRIL
     Dates: start: 20180423, end: 20201220

REACTIONS (1)
  - Angioedema [None]
